FAERS Safety Report 13190538 (Version 2)
Quarter: 2017Q1

REPORT INFORMATION
  Report Type: Spontaneous
  Country: AE (occurrence: AE)
  Receive Date: 20170206
  Receipt Date: 20170210
  Transmission Date: 20170428
  Serious: Yes (Death, Other)
  Sender: FDA-Public Use
  Company Number: PHHY2017AE016603

PATIENT
  Age: 5 Year
  Sex: Male

DRUGS (1)
  1. EXJADE [Suspect]
     Active Substance: DEFERASIROX
     Indication: THALASSAEMIA BETA
     Dosage: 625 MG, QD (34 MG/ KG/ DAY)
     Route: 048
     Dates: start: 201602

REACTIONS (13)
  - Metabolic acidosis [Fatal]
  - Hyperammonaemia [Fatal]
  - Hepatic encephalopathy [Fatal]
  - Acute kidney injury [Fatal]
  - Renal tubular acidosis [Fatal]
  - Pain [Unknown]
  - Hypocalcaemia [Fatal]
  - Hypophosphataemia [Fatal]
  - Coma hepatic [Fatal]
  - Hypokalaemia [Fatal]
  - Depressed level of consciousness [Unknown]
  - Pyrexia [Unknown]
  - Hypoglycaemia [Fatal]
